FAERS Safety Report 6968664-6 (Version None)
Quarter: 2010Q3

REPORT INFORMATION
  Report Type: 
  Country: None (occurrence: None)
  Receive Date: 20100901
  Receipt Date: 20100823
  Transmission Date: 20110219
  Serious: Yes (Death, Hospitalization)
  Sender: FDA-Public Use
  Company Number: 2010AC000282

PATIENT
  Age: 85 Year
  Sex: Female

DRUGS (8)
  1. DIGOXIN [Suspect]
     Dosage: ;PO
     Route: 048
     Dates: start: 20080303, end: 20080416
  2. DIGOXIN [Suspect]
     Dosage: .250 MG;QD;PO
     Route: 048
     Dates: start: 20080401
  3. SENNA/MOM [Concomitant]
  4. BISACODYL [Concomitant]
  5. COUMADIN [Concomitant]
  6. METOPROLOL TARTRATE [Concomitant]
  7. NORVASC [Concomitant]
  8. ASPIRIN [Concomitant]

REACTIONS (37)
  - ACUTE MYOCARDIAL INFARCTION [None]
  - ASTHENIA [None]
  - ATELECTASIS [None]
  - CARDIOMEGALY [None]
  - CLOSTRIDIUM TEST POSITIVE [None]
  - COAGULOPATHY [None]
  - CORONARY ARTERY DISEASE [None]
  - DIARRHOEA [None]
  - DIVERTICULUM INTESTINAL [None]
  - DIZZINESS [None]
  - EMBOLIC STROKE [None]
  - EROSIVE OESOPHAGITIS [None]
  - FALL [None]
  - FISTULA [None]
  - GASTRITIS [None]
  - HAEMATEMESIS [None]
  - HYPOKALAEMIA [None]
  - HYPOPHAGIA [None]
  - HYPOTENSION [None]
  - HYPOVOLAEMIA [None]
  - HYPOXIA [None]
  - INJURY [None]
  - INTERNATIONAL NORMALISED RATIO INCREASED [None]
  - LETHARGY [None]
  - MALAISE [None]
  - MELAENA [None]
  - OCCULT BLOOD POSITIVE [None]
  - POST PROCEDURAL INFECTION [None]
  - RENAL ATROPHY [None]
  - RENAL CYST [None]
  - RENAL FAILURE ACUTE [None]
  - RHONCHI [None]
  - SMALL INTESTINAL OBSTRUCTION [None]
  - THROMBOSIS [None]
  - UPPER GASTROINTESTINAL HAEMORRHAGE [None]
  - VOMITING [None]
  - WOUND INFECTION STAPHYLOCOCCAL [None]
